FAERS Safety Report 12431769 (Version 1)
Quarter: 2016Q2

REPORT INFORMATION
  Report Type: Spontaneous
  Country: US (occurrence: None)
  Receive Date: 20160602
  Receipt Date: 20160602
  Transmission Date: 20160815
  Serious: Yes (Other)
  Sender: FDA-Public Use
  Company Number: None

PATIENT
  Age: 11 Year
  Sex: Male
  Weight: 37.65 kg

DRUGS (2)
  1. INTUNIV [Suspect]
     Active Substance: GUANFACINE HYDROCHLORIDE
     Indication: ATTENTION DEFICIT/HYPERACTIVITY DISORDER
     Dates: start: 20150801, end: 20160120
  2. INTUNIV [Suspect]
     Active Substance: GUANFACINE HYDROCHLORIDE
     Indication: ANXIETY
     Dates: start: 20150801, end: 20160120

REACTIONS (8)
  - Social avoidant behaviour [None]
  - Lethargy [None]
  - Panic attack [None]
  - Anger [None]
  - Depression [None]
  - Suicidal ideation [None]
  - Aggression [None]
  - Suicidal behaviour [None]

NARRATIVE: CASE EVENT DATE: 20151229
